FAERS Safety Report 9415134 (Version 2)
Quarter: 2013Q4

REPORT INFORMATION
  Report Type: Spontaneous
  Country: PL (occurrence: PL)
  Receive Date: 20130723
  Receipt Date: 20131115
  Transmission Date: 20140711
  Serious: Yes (Life-Threatening, Hospitalization)
  Sender: FDA-Public Use
  Company Number: PL-009507513-1307POL010949

PATIENT
  Age: 55 Year
  Sex: Female
  Weight: 67 kg

DRUGS (1)
  1. TEMODAL [Suspect]
     Indication: BRAIN NEOPLASM MALIGNANT
     Dosage: 130 MG, UNK
     Route: 048
     Dates: start: 20130527, end: 20130617

REACTIONS (3)
  - Hepatotoxicity [Recovering/Resolving]
  - Jaundice [Recovering/Resolving]
  - General physical health deterioration [Recovering/Resolving]
